FAERS Safety Report 18418329 (Version 1)
Quarter: 2020Q4

REPORT INFORMATION
  Report Type: Spontaneous
  Country: CA (occurrence: CA)
  Receive Date: 20201023
  Receipt Date: 20201023
  Transmission Date: 20210114
  Serious: Yes (Other)
  Sender: FDA-Public Use
  Company Number: CA-ABBVIE-20K-028-3617236-00

PATIENT
  Age: 38 Year
  Sex: Female

DRUGS (1)
  1. HUMIRA [Suspect]
     Active Substance: ADALIMUMAB
     Indication: HIDRADENITIS
     Route: 058

REACTIONS (6)
  - Uterine haemorrhage [Unknown]
  - Maternal exposure during pregnancy [Unknown]
  - Abnormal labour [Unknown]
  - Live birth [Unknown]
  - Haemorrhage [Unknown]
  - Haemorrhagic diathesis [Unknown]
